FAERS Safety Report 21443459 (Version 1)
Quarter: 2022Q4

REPORT INFORMATION
  Report Type: Spontaneous
  Country: None (occurrence: US)
  Receive Date: 20221012
  Receipt Date: 20221012
  Transmission Date: 20230112
  Serious: No
  Sender: FDA-Public Use
  Company Number: US-Lavipharm SA-2133722

PATIENT
  Sex: Female

DRUGS (1)
  1. CATAPRES-TTS [Suspect]
     Active Substance: CLONIDINE
     Indication: Blood pressure management

REACTIONS (1)
  - Product dose omission issue [Unknown]

NARRATIVE: CASE EVENT DATE: 20220101
